FAERS Safety Report 8542917-2 (Version None)
Quarter: 2012Q3

REPORT INFORMATION
  Report Type: 
  Country: None (occurrence: None)
  Receive Date: 20120727
  Receipt Date: 20120720
  Transmission Date: 20120928
  Serious: Yes (Hospitalization)
  Sender: FDA-Public Use
  Company Number: US-009507513-1207USA009200

PATIENT

DRUGS (3)
  1. REBETOL [Suspect]
     Indication: HEPATITIS C
     Dosage: UNK
     Dates: start: 20120429
  2. VICTRELIS [Suspect]
     Indication: HEPATITIS C
     Dosage: UNK
     Dates: start: 20120527
  3. PEG-INTRON [Suspect]
     Indication: HEPATITIS C
     Dosage: UNK
     Dates: start: 20120429

REACTIONS (12)
  - WEIGHT DECREASED [None]
  - PNEUMONIA [None]
  - DIARRHOEA [None]
  - CHEST PAIN [None]
  - HEART RATE INCREASED [None]
  - DYSGEUSIA [None]
  - NAUSEA [None]
  - EATING DISORDER [None]
  - MUSCULOSKELETAL DISCOMFORT [None]
  - HEADACHE [None]
  - PYREXIA [None]
  - SKIN ODOUR ABNORMAL [None]
